FAERS Safety Report 24340755 (Version 1)
Quarter: 2024Q3

REPORT INFORMATION
  Report Type: Spontaneous
  Country: DE (occurrence: DE)
  Receive Date: 20240919
  Receipt Date: 20240919
  Transmission Date: 20241017
  Serious: Yes (Other)
  Sender: SANDOZ
  Company Number: DE-ROCHE-3182604

PATIENT
  Age: 45 Year
  Sex: Female
  Weight: 83 kg

DRUGS (10)
  1. CARBOPLATIN [Suspect]
     Active Substance: CARBOPLATIN
     Dosage: 680 MG
     Route: 065
     Dates: start: 20220908
  2. CARBOPLATIN [Suspect]
     Active Substance: CARBOPLATIN
     Dosage: 705 MG
     Route: 065
     Dates: start: 20221103
  3. CARBOPLATIN [Suspect]
     Active Substance: CARBOPLATIN
     Indication: Breast cancer
     Dosage: 770 MG
     Route: 065
     Dates: start: 20220602
  4. PACLITAXEL [Suspect]
     Active Substance: PACLITAXEL
     Indication: Breast cancer
     Dosage: 160 MG, QW
     Route: 065
     Dates: start: 20220602
  5. PACLITAXEL [Suspect]
     Active Substance: PACLITAXEL
     Dosage: 160 MG
     Route: 065
     Dates: start: 20220915, end: 20221110
  6. PERTUZUMAB [Suspect]
     Active Substance: PERTUZUMAB
     Indication: Breast cancer
     Dosage: LAST DOSE PRIOR TO AE WAS ON 02/JUN/2022, DOSE WAS 1200MG
     Route: 065
     Dates: start: 20220602, end: 20220602
  7. PERTUZUMAB [Suspect]
     Active Substance: PERTUZUMAB
     Dosage: 600 MG
     Route: 065
     Dates: start: 20220908, end: 20221103
  8. PERTUZUMAB [Suspect]
     Active Substance: PERTUZUMAB
     Dosage: LAST DOSE ( 600 MG) PRIOR TO AE WAS ON 08/SEP/2022.ON 03/NOV/2022, SHE RECEIVED THE LAST APPLICATION
     Route: 065
     Dates: start: 20220707, end: 20221209
  9. TRASTUZUMAB [Suspect]
     Active Substance: TRASTUZUMAB
     Indication: Breast cancer
     Dosage: 600 MG
     Route: 042
     Dates: start: 20220602
  10. TRASTUZUMAB [Suspect]
     Active Substance: TRASTUZUMAB
     Dosage: 600 MG
     Route: 042
     Dates: start: 20220908, end: 20221209

REACTIONS (3)
  - General physical health deterioration [Recovering/Resolving]
  - Leukopenia [Recovering/Resolving]
  - Anaemia [Recovering/Resolving]

NARRATIVE: CASE EVENT DATE: 20220607
